FAERS Safety Report 21261872 (Version 3)
Quarter: 2022Q4

REPORT INFORMATION
  Report Type: Report from Study
  Country: GB (occurrence: GB)
  Receive Date: 20220827
  Receipt Date: 20221227
  Transmission Date: 20230113
  Serious: Yes (Hospitalization)
  Sender: FDA-Public Use
  Company Number: GB-NOVARTISPH-NVSC2022GB192700

PATIENT
  Age: 20 Month
  Sex: Female
  Weight: 9.4 kg

DRUGS (1)
  1. ZOLGENSMA [Suspect]
     Active Substance: ONASEMNOGENE ABEPARVOVEC-XIOI
     Indication: Spinal muscular atrophy
     Dosage: 35 ML, ONCE/SINGLE (1.1 X 10 (14) PER KG)
     Route: 042
     Dates: start: 20210601, end: 20210601

REACTIONS (4)
  - Respiratory tract infection [Recovered/Resolved]
  - Respiratory syncytial virus infection [Recovering/Resolving]
  - Gastric pH decreased [Unknown]
  - Drug ineffective [Unknown]

NARRATIVE: CASE EVENT DATE: 20220806
